FAERS Safety Report 7928193-X (Version None)
Quarter: 2011Q4

REPORT INFORMATION
  Report Type: 
  Country: None (occurrence: None)
  Receive Date: 20111118
  Receipt Date: 20111109
  Transmission Date: 20120403
  Serious: Yes (Death, Other)
  Sender: FDA-Public Use
  Company Number: JP-CELGENEUS-087-50794-11090606

PATIENT
  Sex: Male
  Weight: 68 kg

DRUGS (15)
  1. GRANISETRON [Concomitant]
     Route: 065
     Dates: start: 20110727, end: 20110802
  2. VIDAZA [Suspect]
     Dosage: 75 MILLIGRAM/SQ. METER
     Route: 041
     Dates: start: 20110819, end: 20110825
  3. MAXIPIME [Concomitant]
     Route: 065
     Dates: start: 20110809, end: 20110815
  4. NEUTROGIN [Concomitant]
     Route: 065
     Dates: start: 20110810, end: 20110818
  5. AMBISOME [Concomitant]
     Route: 065
     Dates: start: 20110830, end: 20110830
  6. NONTHRON [Concomitant]
     Route: 065
     Dates: start: 20110801, end: 20110803
  7. VIDAZA [Suspect]
     Indication: MYELODYSPLASTIC SYNDROME
     Dosage: 75 MILLIGRAM/SQ. METER
     Route: 041
     Dates: start: 20110727, end: 20110802
  8. FUNGUARD [Concomitant]
     Route: 065
     Dates: start: 20110815, end: 20110819
  9. FAMOTIDINE [Concomitant]
     Route: 065
     Dates: start: 20110727
  10. WYSTAL [Concomitant]
     Route: 065
     Dates: start: 20110727, end: 20110729
  11. RECOMODULIN [Concomitant]
     Route: 065
     Dates: start: 20110730, end: 20110803
  12. VANCOMYCIN [Concomitant]
     Route: 065
     Dates: start: 20110811, end: 20110823
  13. MEROPENEM [Concomitant]
     Route: 065
     Dates: start: 20110815, end: 20110819
  14. NISSEKI POLYGLOBIN-N [Concomitant]
     Route: 065
     Dates: start: 20110816, end: 20110818
  15. VFEND [Concomitant]
     Route: 065
     Dates: start: 20110727, end: 20110728

REACTIONS (3)
  - GASTROINTESTINAL HAEMORRHAGE [None]
  - DISSEMINATED INTRAVASCULAR COAGULATION [None]
  - SEPSIS [None]
